FAERS Safety Report 4446563-1 (Version None)
Quarter: 2004Q3

REPORT INFORMATION
  Report Type: 
  Country: None (occurrence: None)
  Receive Date: 20040902
  Receipt Date: 20040812
  Transmission Date: 20050211
  Serious: Yes (Hospitalization, Other)
  Sender: FDA-Public Use
  Company Number: DE_040814106

PATIENT
  Age: 60 Year
  Sex: Male

DRUGS (4)
  1. GEMZAR [Suspect]
     Indication: PANCREATIC CARCINOMA
     Dosage: 1000 MG/M2
     Dates: start: 20040101
  2. PANTOZOL (PANTOPRAZOLE SODIUM) [Concomitant]
  3. KREON (PANCREATIN) [Concomitant]
  4. POTASSIUM [Concomitant]

REACTIONS (9)
  - BLOOD CREATININE INCREASED [None]
  - DYSPNOEA EXERTIONAL [None]
  - HYPOALBUMINAEMIA [None]
  - HYPOTENSION [None]
  - OEDEMA PERIPHERAL [None]
  - PLEURAL EFFUSION [None]
  - PROTEIN TOTAL INCREASED [None]
  - THROMBOSIS [None]
  - WEIGHT INCREASED [None]
